FAERS Safety Report 6083077-X (Version None)
Quarter: 2009Q1

REPORT INFORMATION
  Report Type: 
  Country: None (occurrence: None)
  Receive Date: 20090218
  Receipt Date: 20090209
  Transmission Date: 20090719
  Serious: Yes (Other)
  Sender: FDA-Public Use
  Company Number: US-AMGEN-QUU333265

PATIENT
  Sex: Female

DRUGS (4)
  1. ENBREL [Suspect]
     Indication: PSORIASIS
     Route: 058
     Dates: start: 20040121
  2. ENBREL [Suspect]
     Indication: PSORIATIC ARTHROPATHY
  3. VITAMIN TAB [Concomitant]
  4. SYNTHROID [Concomitant]
     Route: 048

REACTIONS (2)
  - MUSCULOSKELETAL DISORDER [None]
  - PREMATURE LABOUR [None]
